FAERS Safety Report 10771678 (Version 2)
Quarter: 2015Q3

REPORT INFORMATION
  Report Type: Spontaneous
  Country: AT (occurrence: AT)
  Receive Date: 20150206
  Receipt Date: 20150707
  Transmission Date: 20151125
  Serious: Yes (Hospitalization)
  Sender: FDA-Public Use
  Company Number: AT-ASTRAZENECA-2015SE11692

PATIENT
  Age: 51 Year
  Sex: Male

DRUGS (37)
  1. PRAXITEN [Suspect]
     Active Substance: OXAZEPAM
     Route: 048
     Dates: start: 20130316, end: 20130317
  2. RISPERDAL [Concomitant]
     Active Substance: RISPERIDONE
     Dates: start: 20130315, end: 20130326
  3. UNASYN [Concomitant]
     Active Substance: AMPICILLIN SODIUM\SULBACTAM SODIUM
     Route: 042
     Dates: start: 20130319, end: 20130319
  4. LASIX [Concomitant]
     Active Substance: FUROSEMIDE
     Dosage: 40 MG 3 TIMES/WEEK
     Dates: start: 20130320
  5. NEURONTIN [Concomitant]
     Active Substance: GABAPENTIN
     Dates: start: 20130306, end: 20130317
  6. GABAPENTIN. [Concomitant]
     Active Substance: GABAPENTIN
     Dosage: PFIZER, 1200 MG
  7. PRAXITEN [Suspect]
     Active Substance: OXAZEPAM
     Route: 048
     Dates: start: 20130304, end: 20130314
  8. ACEMIN [Concomitant]
     Active Substance: LISINOPRIL
     Dates: start: 201303
  9. RISPERDAL [Concomitant]
     Active Substance: RISPERIDONE
     Dates: start: 20130304, end: 20130314
  10. RISPERDAL [Concomitant]
     Active Substance: RISPERIDONE
     Dates: start: 20130327
  11. NIKOTINELL PFLASTER [Concomitant]
     Dosage: 15MG/16H
     Dates: start: 20130315, end: 20130326
  12. SPIROBENE [Concomitant]
     Dosage: 50 MG
  13. PRAXITEN [Suspect]
     Active Substance: OXAZEPAM
     Route: 048
     Dates: start: 2002, end: 20130303
  14. PRAXITEN [Suspect]
     Active Substance: OXAZEPAM
     Dosage: ANXIOLIT FORTE; 200 MG DAILY
     Route: 048
     Dates: start: 20130318, end: 20130319
  15. PRAXITEN [Suspect]
     Active Substance: OXAZEPAM
     Dosage: ANXIOLIT FORTE; 150 MG DAILY
     Route: 048
     Dates: start: 20130327
  16. COMPENSAN RETARD [Concomitant]
     Dates: start: 20130307, end: 20130315
  17. SEROQUEL [Suspect]
     Active Substance: QUETIAPINE FUMARATE
     Route: 048
  18. PRAXITEN [Suspect]
     Active Substance: OXAZEPAM
     Dosage: ANXIOLIT FORTE; 175 MG DAILY
     Route: 048
     Dates: start: 20130320, end: 20130321
  19. ASPIRIN. [Suspect]
     Active Substance: ASPIRIN
     Route: 048
     Dates: start: 201302, end: 20130305
  20. ASPIRIN. [Suspect]
     Active Substance: ASPIRIN
     Route: 048
     Dates: end: 20130306
  21. LOVENOX [Concomitant]
     Active Substance: ENOXAPARIN SODIUM
     Route: 058
     Dates: start: 201303, end: 20130317
  22. NEURONTIN [Concomitant]
     Active Substance: GABAPENTIN
     Dates: start: 20130326
  23. PRAXITEN [Suspect]
     Active Substance: OXAZEPAM
     Dosage: ANXIOLIT FORTE; 150 MG DAILY
     Route: 048
     Dates: start: 20130322, end: 20130324
  24. UNASYN [Concomitant]
     Active Substance: AMPICILLIN SODIUM\SULBACTAM SODIUM
     Route: 042
     Dates: start: 20130309, end: 20130317
  25. PRAXITEN [Suspect]
     Active Substance: OXAZEPAM
     Route: 048
     Dates: start: 20130315, end: 20130315
  26. LOVENOX [Concomitant]
     Active Substance: ENOXAPARIN SODIUM
     Route: 058
     Dates: start: 201303, end: 20130317
  27. COMPENSAN RETARD [Concomitant]
     Dates: start: 20130316
  28. SEROQUEL [Suspect]
     Active Substance: QUETIAPINE FUMARATE
     Route: 048
     Dates: start: 20130304, end: 20130306
  29. PRAXITEN [Suspect]
     Active Substance: OXAZEPAM
     Dosage: ANXIOLIT FORTE; 125 MG DAILY
     Route: 048
     Dates: start: 20130325, end: 20130326
  30. ASPIRIN. [Suspect]
     Active Substance: ASPIRIN
     Route: 048
  31. NIKOTINELL PFLASTER [Concomitant]
     Dosage: 21MG/24H
     Dates: start: 201303, end: 20130314
  32. UNASYN [Concomitant]
     Active Substance: AMPICILLIN SODIUM\SULBACTAM SODIUM
     Route: 042
     Dates: start: 20130318, end: 20130318
  33. NEURONTIN [Concomitant]
     Active Substance: GABAPENTIN
     Dates: start: 20130318, end: 20130325
  34. NEBILAN [Concomitant]
     Dosage: 2.5 MG
  35. VENDAL (NON AZ PRODUCT) [Suspect]
     Active Substance: MORPHINE HYDROCHLORIDE
     Dosage: NON AZ PRODUCT; 900 MG DAILY
     Route: 048
     Dates: start: 2002, end: 20130306
  36. LASIX [Concomitant]
     Active Substance: FUROSEMIDE
     Dates: start: 201303, end: 20130319
  37. LEUKICHTAN [Concomitant]
     Dosage: TWO TIMES A DAY; APPLY LOCAL GLUTEAL

REACTIONS (1)
  - Respiratory depression [Recovering/Resolving]

NARRATIVE: CASE EVENT DATE: 20130304
